FAERS Safety Report 9554434 (Version 1)
Quarter: 2013Q3

REPORT INFORMATION
  Report Type: Report from Study
  Country: AR (occurrence: AR)
  Receive Date: 20130925
  Receipt Date: 20130925
  Transmission Date: 20140515
  Serious: Yes (Death)
  Sender: FDA-Public Use
  Company Number: PHHY2013AR106962

PATIENT
  Sex: Female

DRUGS (1)
  1. DIOVAN D [Suspect]
     Dosage: 1 DF, (80MG VALS/UKN MG HCT)
     Route: 048

REACTIONS (1)
  - Death [Fatal]
